FAERS Safety Report 15237725 (Version 1)
Quarter: 2018Q3

REPORT INFORMATION
  Report Type: Report from Study
  Country: DE (occurrence: DE)
  Receive Date: 20180803
  Receipt Date: 20180803
  Transmission Date: 20181010
  Serious: Yes (Death, Hospitalization)
  Sender: FDA-Public Use
  Company Number: DE-CELGENEUS-DEU-20180607808

PATIENT
  Age: 74 Year
  Sex: Female
  Weight: 70 kg

DRUGS (1)
  1. ABRAXANE [Suspect]
     Active Substance: PACLITAXEL
     Indication: PANCREATIC CARCINOMA
     Dosage: 18.6207 MILLIGRAM
     Route: 041
     Dates: start: 20180105, end: 20180420

REACTIONS (3)
  - Vomiting [Fatal]
  - Aspiration [Fatal]
  - Nausea [Fatal]

NARRATIVE: CASE EVENT DATE: 20180423
